FAERS Safety Report 8050147-6 (Version None)
Quarter: 2012Q1

REPORT INFORMATION
  Report Type: 
  Country: None (occurrence: None)
  Receive Date: 20120111
  Receipt Date: 20120104
  Transmission Date: 20120608
  Serious: Yes (Other)
  Sender: FDA-Public Use
  Company Number: 2012SP000803

PATIENT
  Sex: Male

DRUGS (3)
  1. RIBAVIRIN [Suspect]
     Indication: HEPATITIS C
     Dates: start: 20111127
  2. VICTRELIS [Suspect]
     Indication: HEPATITIS C
     Dates: start: 20111225
  3. PEG-INTRON [Suspect]
     Indication: HEPATITIS C
     Dates: start: 20111127

REACTIONS (2)
  - SYNCOPE [None]
  - DIZZINESS [None]
